FAERS Safety Report 12869694 (Version 1)
Quarter: 2016Q4

REPORT INFORMATION
  Report Type: Spontaneous
  Country: US (occurrence: US)
  Receive Date: 20161020
  Receipt Date: 20161020
  Transmission Date: 20170207
  Serious: Yes (Hospitalization)
  Sender: FDA-Public Use
  Company Number: None

PATIENT
  Age: 70 Year
  Sex: Female
  Weight: 84.5 kg

DRUGS (1)
  1. IRON SUCROSE [Suspect]
     Active Substance: IRON SUCROSE
     Indication: ANAEMIA
     Dosage: ?          OTHER FREQUENCY:200 MG X5 DOSES;?
     Dates: start: 20160817, end: 20160825

REACTIONS (4)
  - Urticaria [None]
  - Helicobacter infection [None]
  - Pruritus [None]
  - Pyrexia [None]

NARRATIVE: CASE EVENT DATE: 20160825
